FAERS Safety Report 25963418 (Version 1)
Quarter: 2025Q4

REPORT INFORMATION
  Report Type: Spontaneous
  Country: JP (occurrence: JP)
  Receive Date: 20251027
  Receipt Date: 20251027
  Transmission Date: 20260117
  Serious: Yes (Hospitalization)
  Sender: NOVO NORDISK
  Company Number: JP-NOVOPROD-1544108

PATIENT
  Age: 46 Year
  Sex: Male
  Weight: 71 kg

DRUGS (8)
  1. TRESIBA [Suspect]
     Active Substance: INSULIN DEGLUDEC
     Indication: Type 1 diabetes mellitus
     Dosage: 14 IU, QD
     Route: 058
     Dates: start: 20180305
  2. TRESIBA [Suspect]
     Active Substance: INSULIN DEGLUDEC
     Indication: Obesity
  3. INSULIN ASPART [Suspect]
     Active Substance: INSULIN ASPART
     Indication: Type 1 diabetes mellitus
     Dosage: 58 IU, QD
     Route: 058
     Dates: start: 20210701
  4. INSULIN ASPART [Suspect]
     Active Substance: INSULIN ASPART
     Indication: Obesity
  5. ROSUVASTATIN [Concomitant]
     Active Substance: ROSUVASTATIN
     Indication: Dyslipidaemia
     Dosage: UNK
     Route: 048
  6. EZETIMIBE [Concomitant]
     Active Substance: EZETIMIBE
     Indication: Dyslipidaemia
     Dosage: UNK
     Route: 048
  7. ICOSAPENT ETHYL [Concomitant]
     Active Substance: ICOSAPENT ETHYL
     Indication: Dyslipidaemia
     Dosage: UNK
     Route: 048
  8. LOXOPROFEN SODIUM [Concomitant]
     Active Substance: LOXOPROFEN SODIUM
     Indication: Intervertebral disc protrusion
     Dosage: UNK
     Route: 048

REACTIONS (1)
  - Gastric atony [Recovered/Resolved]

NARRATIVE: CASE EVENT DATE: 20250808
